FAERS Safety Report 5948357-4 (Version None)
Quarter: 2008Q4

REPORT INFORMATION
  Report Type: 
  Country: None (occurrence: None)
  Receive Date: 20081110
  Receipt Date: 20081110
  Transmission Date: 20090506
  Serious: Yes (Other)
  Sender: FDA-Public Use
  Company Number: None

PATIENT
  Age: 86 Year
  Sex: Female
  Weight: 38.5557 kg

DRUGS (2)
  1. FLUCONAZOLE [Suspect]
     Indication: SKIN CANDIDA
     Dosage: 150MG QD PO
     Route: 048
     Dates: start: 20080918, end: 20080925
  2. FLUCONAZOLE [Suspect]
     Indication: SKIN CANDIDA
     Dosage: 150MG QD PO
     Route: 048
     Dates: start: 20081015, end: 20081024

REACTIONS (6)
  - ERYTHEMA MULTIFORME [None]
  - MULTI-ORGAN FAILURE [None]
  - RASH [None]
  - SEPSIS [None]
  - SEPTIC SHOCK [None]
  - SKIN EXFOLIATION [None]
